FAERS Safety Report 4549357-1 (Version None)
Quarter: 2005Q1

REPORT INFORMATION
  Report Type: 
  Country: None (occurrence: None)
  Receive Date: 20050106
  Receipt Date: 20041221
  Transmission Date: 20050727
  Serious: Yes (Death)
  Sender: FDA-Public Use
  Company Number: FR_041205371

PATIENT
  Age: 30 Year
  Sex: Female

DRUGS (5)
  1. ZYPREXA [Suspect]
     Indication: ACUTE PSYCHOSIS
     Dosage: 20 MG DAY
     Dates: start: 20041107
  2. EFFEXOR [Concomitant]
  3. XANAX (ALPRAZOLAM DUM) [Concomitant]
  4. IMOVANE (ZOPICLONE) [Concomitant]
  5. LEPTICUR (TROPATEPINE HYDROCHLORIDE) [Concomitant]

REACTIONS (5)
  - ANTIPSYCHOTIC DRUG LEVEL INCREASED [None]
  - COMPLETED SUICIDE [None]
  - CONDITION AGGRAVATED [None]
  - DELIRIUM [None]
  - INJURY ASPHYXIATION [None]
